FAERS Safety Report 23874303 (Version 2)
Quarter: 2024Q2

REPORT INFORMATION
  Report Type: Spontaneous
  Country: PL (occurrence: PL)
  Receive Date: 20240520
  Receipt Date: 20240613
  Transmission Date: 20240716
  Serious: Yes (Hospitalization, Other)
  Sender: FDA-Public Use
  Company Number: PL-ABBVIE-5755710

PATIENT
  Age: 9 Year
  Sex: Female

DRUGS (1)
  1. ADALIMUMAB [Suspect]
     Active Substance: ADALIMUMAB\ISOPROPYL ALCOHOL
     Indication: Colitis ulcerative
     Dosage: UNK
     Route: 058
     Dates: start: 202310

REACTIONS (4)
  - Anaemia [Unknown]
  - Colitis ulcerative [Unknown]
  - Therapeutic product effect incomplete [Unknown]
  - Inflammatory marker increased [Unknown]
